FAERS Safety Report 19467652 (Version 1)
Quarter: 2021Q2

REPORT INFORMATION
  Report Type: Spontaneous
  Country: US (occurrence: US)
  Receive Date: 20210626
  Receipt Date: 20210626
  Transmission Date: 20210717
  Serious: Yes (Hospitalization)
  Sender: FDA-Public Use
  Company Number: None

PATIENT
  Age: 3 Year
  Sex: Male
  Weight: 13.2 kg

DRUGS (4)
  1. ETOPOSIDE (VP?16) [Suspect]
     Active Substance: ETOPOSIDE
  2. CARBOPLATIN. [Suspect]
     Active Substance: CARBOPLATIN
  3. MELPHALAN. [Suspect]
     Active Substance: MELPHALAN
  4. G?CSF (FILGRASTIM, AMGEN) [Suspect]
     Active Substance: FILGRASTIM

REACTIONS (8)
  - Acute kidney injury [None]
  - Fluid retention [None]
  - Renal replacement therapy [None]
  - Pulmonary function test decreased [None]
  - Weight increased [None]
  - Hepatomegaly [None]
  - Blood bilirubin increased [None]
  - Tenderness [None]

NARRATIVE: CASE EVENT DATE: 20210621
